FAERS Safety Report 11596392 (Version 1)
Quarter: 2015Q4

REPORT INFORMATION
  Report Type: Spontaneous
  Country: US (occurrence: None)
  Receive Date: 20151006
  Receipt Date: 20151006
  Transmission Date: 20160304
  Serious: Yes (Hospitalization, Other)
  Sender: FDA-Public Use
  Company Number: US-MDT-ADR-2015-01903

PATIENT
  Age: 47 Year
  Sex: Female

DRUGS (2)
  1. BACLOFEN INTRATHECAL 180 MCG/ML [Suspect]
     Active Substance: BACLOFEN
     Indication: PAIN
  2. DILAUDID [Suspect]
     Active Substance: HYDROMORPHONE HYDROCHLORIDE

REACTIONS (3)
  - Pyrexia [None]
  - Drug dose omission [None]
  - Malaise [None]
